FAERS Safety Report 10025172 (Version 7)
Quarter: 2015Q2

REPORT INFORMATION
  Report Type: Spontaneous
  Country: US (occurrence: None)
  Receive Date: 20140318
  Receipt Date: 20150608
  Transmission Date: 20150821
  Serious: Yes (Congenital Anomaly)
  Sender: FDA-Public Use
  Company Number: KAD201403-000315

PATIENT
  Age: 39 Week
  Sex: Male
  Weight: 7.53 kg

DRUGS (5)
  1. RIBASPHERE RIBAPAK [Suspect]
     Active Substance: RIBAVIRIN
     Route: 064
  2. PROPYLITHIOURACIL (PROPYLITHIOURACIL) [Concomitant]
  3. TDAP (COMBINED TETANUS, DIPTHERIA AND PERTUSSIS VACCINES) [Concomitant]
  4. PEGASYS [Suspect]
     Active Substance: PEGINTERFERON ALFA-2A
     Route: 064
  5. IRON (IRON) [Concomitant]
     Active Substance: IRON

REACTIONS (4)
  - Maternal drugs affecting foetus [None]
  - Chordee [None]
  - Foetal growth restriction [None]
  - Hypospadias [None]
